FAERS Safety Report 9225218 (Version 1)
Quarter: 2013Q2

REPORT INFORMATION
  Report Type: Spontaneous
  Country: US (occurrence: None)
  Receive Date: 20130410
  Receipt Date: 20130410
  Transmission Date: 20140414
  Serious: Yes (Other)
  Sender: FDA-Public Use
  Company Number: None

PATIENT
  Sex: Female
  Weight: 59.42 kg

DRUGS (2)
  1. AMLODIPINE BESYLATE [Suspect]
     Route: 048
     Dates: start: 20110325, end: 20110414
  2. METOPROLOL [Suspect]
     Route: 048
     Dates: start: 20130308, end: 20130311

REACTIONS (5)
  - Dizziness [None]
  - Vertigo [None]
  - Balance disorder [None]
  - Rhinorrhoea [None]
  - Nasal congestion [None]
